FAERS Safety Report 6687384-9 (Version None)
Quarter: 2010Q2

REPORT INFORMATION
  Report Type: 
  Country: None (occurrence: None)
  Receive Date: 20100415
  Receipt Date: 20100405
  Transmission Date: 20101027
  Serious: Yes (Hospitalization, Other)
  Sender: FDA-Public Use
  Company Number: 1000013156

PATIENT
  Age: 81 Year
  Sex: Male

DRUGS (6)
  1. ESCITALOPRAM [Suspect]
     Indication: PAIN
     Dosage: 5 MG (5 MG, 1 IN 1 D), ORAL
     Route: 048
     Dates: start: 20090205
  2. IBUPROFEN TABLETS [Suspect]
     Indication: PAIN
     Dosage: ORAL
     Route: 048
     Dates: end: 20090809
  3. TIOTROPIUM [Concomitant]
  4. SALMETEROL [Concomitant]
  5. RISPERIDONE [Concomitant]
  6. BENSERAZIDE [Concomitant]

REACTIONS (3)
  - DRUG INTERACTION [None]
  - LOWER GASTROINTESTINAL HAEMORRHAGE [None]
  - OFF LABEL USE [None]
